FAERS Safety Report 12847093 (Version 1)
Quarter: 2016Q4

REPORT INFORMATION
  Report Type: Spontaneous
  Country: US (occurrence: US)
  Receive Date: 20161014
  Receipt Date: 20161014
  Transmission Date: 20170207
  Serious: Yes (Hospitalization)
  Sender: FDA-Public Use
  Company Number: US-TAIHO ONCOLOGY INC-EU-2016-02483

PATIENT
  Age: 41 Year
  Sex: Male

DRUGS (4)
  1. ASTRAGALUS [Concomitant]
     Dosage: NI
  2. LONSURF [Suspect]
     Active Substance: TIPIRACIL HYDROCHLORIDE\TRIFLURIDINE
     Indication: COLON CANCER
     Route: 048
     Dates: start: 201511, end: 20160926
  3. PROPRANOLOL [Concomitant]
     Active Substance: PROPRANOLOL\PROPRANOLOL HYDROCHLORIDE
     Dosage: NI
  4. VITAMIN D3 [Concomitant]
     Active Substance: CHOLECALCIFEROL
     Dosage: NI

REACTIONS (5)
  - Anaemia [Recovering/Resolving]
  - Upper gastrointestinal haemorrhage [Unknown]
  - Disease progression [Unknown]
  - Gastric varices [Unknown]
  - Portal hypertensive gastropathy [Unknown]

NARRATIVE: CASE EVENT DATE: 20151206
